FAERS Safety Report 9357106 (Version 1)
Quarter: 2013Q2

REPORT INFORMATION
  Report Type: Spontaneous
  Country: IT (occurrence: IT)
  Receive Date: 20130620
  Receipt Date: 20130620
  Transmission Date: 20140414
  Serious: Yes (Other)
  Sender: FDA-Public Use
  Company Number: IT-ACCORD-018106

PATIENT
  Age: 59 Year
  Sex: Female

DRUGS (6)
  1. GEMCITABINE [Suspect]
     Indication: OVARIAN CANCER
     Route: 042
     Dates: start: 20120920, end: 20121206
  2. ONDANSETRON HYDROCHLORIDE [Concomitant]
     Indication: PROPHYLAXIS OF NAUSEA AND VOMITING
     Route: 042
     Dates: start: 20120920, end: 20121206
  3. NEXIUM [Concomitant]
     Route: 048
  4. SOLDESAM [Concomitant]
     Route: 042
     Dates: start: 20120920, end: 20121206
  5. EUTIROX [Concomitant]
     Route: 048
  6. DEPALGOS [Concomitant]

REACTIONS (4)
  - Flushing [Recovering/Resolving]
  - Asthenia [Recovering/Resolving]
  - Hyperpyrexia [Recovering/Resolving]
  - Off label use [Unknown]
